FAERS Safety Report 4376120-7 (Version None)
Quarter: 2004Q2

REPORT INFORMATION
  Report Type: 
  Country: None (occurrence: None)
  Receive Date: 20040609
  Receipt Date: 20040609
  Transmission Date: 20050107
  Serious: No
  Sender: FDA-Public Use
  Company Number: None

PATIENT
  Age: 70 Year
  Sex: Female
  Weight: 58.9676 kg

DRUGS (5)
  1. VASOTEC [Suspect]
     Indication: HYPERTENSION
     Dosage: 5 MG PO BID
     Route: 048
     Dates: start: 20040211, end: 20040227
  2. HYDROCHLOROTHIAZIDE [Concomitant]
  3. FLONASE [Concomitant]
  4. CALCIUM W/D [Concomitant]
  5. CENESTIN [Concomitant]

REACTIONS (4)
  - MENTAL STATUS CHANGES [None]
  - NERVOUS SYSTEM DISORDER [None]
  - RASH [None]
  - SPEECH DISORDER [None]
